FAERS Safety Report 6349559-8 (Version None)
Quarter: 2009Q3

REPORT INFORMATION
  Report Type: 
  Country: None (occurrence: None)
  Receive Date: 20090911
  Receipt Date: 20090903
  Transmission Date: 20100115
  Serious: Yes (Hospitalization)
  Sender: FDA-Public Use
  Company Number: SE-VALEANT-2009VX001678

PATIENT
  Sex: Female

DRUGS (1)
  1. MESTINON [Suspect]
     Indication: DRUG USE FOR UNKNOWN INDICATION
     Route: 048
     Dates: start: 20090826, end: 20090826

REACTIONS (1)
  - ASPIRATION [None]
